FAERS Safety Report 15135207 (Version 1)
Quarter: 2018Q3

REPORT INFORMATION
  Report Type: Spontaneous
  Country: PK (occurrence: PK)
  Receive Date: 20180712
  Receipt Date: 20180712
  Transmission Date: 20181010
  Serious: Yes (Hospitalization)
  Sender: FDA-Public Use
  Company Number: PK-ELI_LILLY_AND_COMPANY-PK201807002700

PATIENT
  Sex: Male

DRUGS (1)
  1. HUMULIN 70/30 [Suspect]
     Active Substance: INSULIN HUMAN
     Indication: DIABETES MELLITUS
     Dosage: 50 U, DAILY
     Route: 065
     Dates: start: 2010

REACTIONS (3)
  - Gastric disorder [Not Recovered/Not Resolved]
  - Blood glucose increased [Unknown]
  - Dehydration [Not Recovered/Not Resolved]
